FAERS Safety Report 6823896-2 (Version None)
Quarter: 2010Q3

REPORT INFORMATION
  Report Type: 
  Country: None (occurrence: None)
  Receive Date: 20100708
  Receipt Date: 20060912
  Transmission Date: 20110219
  Serious: No
  Sender: FDA-Public Use
  Company Number: US-PFIZER INC-2006112348

PATIENT
  Sex: Female
  Weight: 58.97 kg

DRUGS (2)
  1. VARENICLINE [Suspect]
     Indication: EX-TOBACCO USER
     Dates: start: 20060829
  2. HYZAAR [Concomitant]

REACTIONS (5)
  - ABDOMINAL DISCOMFORT [None]
  - HYPERSOMNIA [None]
  - MALAISE [None]
  - NAUSEA [None]
  - SOMNOLENCE [None]
